FAERS Safety Report 8029495-1 (Version None)
Quarter: 2012Q1

REPORT INFORMATION
  Report Type: 
  Country: None (occurrence: None)
  Receive Date: 20120109
  Receipt Date: 20120105
  Transmission Date: 20120608
  Serious: Yes (Other)
  Sender: FDA-Public Use
  Company Number: GB-BIOGENIDEC-2011BI017811

PATIENT
  Sex: Female

DRUGS (3)
  1. TOLTERODINE TARTRATE [Concomitant]
  2. PREGABALIN [Concomitant]
  3. TYSABRI [Suspect]
     Indication: MULTIPLE SCLEROSIS
     Route: 042
     Dates: start: 20080214

REACTIONS (2)
  - FACE INJURY [None]
  - GRAND MAL CONVULSION [None]
